FAERS Safety Report 9626356 (Version 1)
Quarter: 2013Q4

REPORT INFORMATION
  Report Type: Spontaneous
  Country: ES (occurrence: ES)
  Receive Date: 20131016
  Receipt Date: 20131016
  Transmission Date: 20140711
  Serious: Yes (Other)
  Sender: FDA-Public Use
  Company Number: ES-009507513-1310ESP005687

PATIENT
  Age: 71 Year
  Sex: Male

DRUGS (4)
  1. VICTRELIS [Suspect]
     Indication: HEPATITIS C
     Dosage: UNK
     Route: 048
     Dates: start: 2013
  2. PEGINTRON [Suspect]
     Indication: HEPATITIS C
     Dosage: 120 MICROGRAM, QW
     Route: 058
     Dates: start: 20130322
  3. COPEGUS [Suspect]
     Indication: HEPATITIS C
     Dosage: 1200MG DAILY
     Route: 048
     Dates: start: 20130322, end: 2013
  4. COPEGUS [Suspect]
     Dosage: 800MG DAILY
     Route: 048
     Dates: start: 2013

REACTIONS (1)
  - Hepatic encephalopathy [Unknown]
